FAERS Safety Report 20921285 (Version 5)
Quarter: 2022Q3

REPORT INFORMATION
  Report Type: Spontaneous
  Country: US (occurrence: US)
  Receive Date: 20220606
  Receipt Date: 20220815
  Transmission Date: 20221027
  Serious: No
  Sender: FDA-Public Use
  Company Number: US-PFIZER INC-202200770675

PATIENT
  Age: 77 Year
  Sex: Female
  Weight: 53.52 kg

DRUGS (1)
  1. PREMARIN [Suspect]
     Active Substance: ESTROGENS, CONJUGATED
     Indication: Tissue injury
     Dosage: 1 G, DAILY

REACTIONS (3)
  - Vulvovaginal burning sensation [Not Recovered/Not Resolved]
  - Product complaint [Not Recovered/Not Resolved]
  - Off label use [Unknown]
